FAERS Safety Report 10434922 (Version 1)
Quarter: 2014Q3

REPORT INFORMATION
  Report Type: Spontaneous
  Country: US (occurrence: None)
  Receive Date: 20140815
  Receipt Date: 20140815
  Transmission Date: 20150326
  Serious: No
  Sender: FDA-Public Use
  Company Number: 2014TUS004583

PATIENT
  Age: 26 Year
  Sex: Female
  Weight: 79.4 kg

DRUGS (4)
  1. BRINTELLIX [Suspect]
     Active Substance: VORTIOXETINE HYDROBROMIDE
     Indication: DEPRESSION
     Route: 048
     Dates: start: 20140515, end: 20140528
  2. BACTRIM (SULFAMETHOXAZOLE, TRIMETHOPRIM) [Concomitant]
  3. BRINTELLIX [Suspect]
     Active Substance: VORTIOXETINE HYDROBROMIDE
     Indication: MAJOR DEPRESSION
     Route: 048
     Dates: start: 20140515, end: 20140528
  4. MACROBID (NITROFURANTON) [Concomitant]

REACTIONS (7)
  - Chills [None]
  - White blood cell count decreased [None]
  - Nausea [None]
  - Muscle fatigue [None]
  - Asthenia [None]
  - Urinary tract infection [None]
  - Dizziness [None]

NARRATIVE: CASE EVENT DATE: 2014
